FAERS Safety Report 13106949 (Version 1)
Quarter: 2017Q1

REPORT INFORMATION
  Report Type: Report from Study
  Country: None (occurrence: PA)
  Receive Date: 20170111
  Receipt Date: 20170111
  Transmission Date: 20170428
  Serious: Yes (Other)
  Sender: FDA-Public Use
  Company Number: PA-ABBVIE-17P-125-1831207-00

PATIENT
  Sex: Female

DRUGS (1)
  1. ZEMPLAR [Suspect]
     Active Substance: PARICALCITOL
     Indication: HYPERPARATHYROIDISM SECONDARY
     Route: 042
     Dates: start: 20151001

REACTIONS (3)
  - Abdominal distension [Not Recovered/Not Resolved]
  - Pancreatitis [Not Recovered/Not Resolved]
  - Hepatomegaly [Not Recovered/Not Resolved]
